FAERS Safety Report 5117797-8 (Version None)
Quarter: 2006Q3

REPORT INFORMATION
  Report Type: 
  Country: None (occurrence: None)
  Receive Date: 20060926
  Receipt Date: 20060920
  Transmission Date: 20061208
  Serious: Yes (Hospitalization)
  Sender: FDA-Public Use
  Company Number: E2020-00346-SPO-JP

PATIENT
  Age: 83 Year
  Sex: Male

DRUGS (4)
  1. ARICEPT [Suspect]
     Indication: DEMENTIA
     Dosage: SEE IMAGE
     Route: 048
     Dates: start: 20060331, end: 20060424
  2. ARICEPT [Suspect]
     Indication: DEMENTIA
     Dosage: SEE IMAGE
     Route: 048
     Dates: start: 20060425
  3. ASPIRIN [Suspect]
     Dosage: 100 MG, 1 IN 1 D, ORAL
     Route: 048
     Dates: start: 20040101, end: 20060501
  4. LOSARTAN POTASSIUM [Concomitant]

REACTIONS (5)
  - ANAEMIA [None]
  - DEMENTIA [None]
  - INTESTINAL ISCHAEMIA [None]
  - MELAENA [None]
  - PALLOR [None]
